FAERS Safety Report 7417225-3 (Version None)
Quarter: 2011Q2

REPORT INFORMATION
  Report Type: 
  Country: None (occurrence: None)
  Receive Date: 20110415
  Receipt Date: 20110412
  Transmission Date: 20111010
  Serious: Yes (Death)
  Sender: FDA-Public Use
  Company Number: TN-SANOFI-AVENTIS-2011SA022747

PATIENT
  Age: 80 Year
  Sex: Male

DRUGS (7)
  1. ROSUVASTATIN [Concomitant]
     Route: 048
     Dates: end: 20110129
  2. PLAVIX [Suspect]
     Route: 048
     Dates: start: 20100515, end: 20110129
  3. KARDEGIC [Concomitant]
     Route: 048
     Dates: end: 20110129
  4. PLAVIX [Suspect]
     Route: 048
     Dates: start: 20100515, end: 20110129
  5. LASIX [Concomitant]
     Route: 048
     Dates: end: 20110129
  6. CORVASAL [Concomitant]
     Route: 048
     Dates: end: 20110129
  7. TENSOPRIL [Concomitant]
     Route: 048
     Dates: end: 20110129

REACTIONS (2)
  - SEPTIC SHOCK [None]
  - SUBCUTANEOUS ABSCESS [None]
